FAERS Safety Report 21770542 (Version 1)
Quarter: 2022Q4

REPORT INFORMATION
  Report Type: Spontaneous
  Country: US (occurrence: US)
  Receive Date: 20221223
  Receipt Date: 20221223
  Transmission Date: 20230113
  Serious: No
  Sender: FDA-Public Use
  Company Number: US-AMGEN-USASP2022218080

PATIENT

DRUGS (1)
  1. BEVACIZUMAB [Suspect]
     Active Substance: BEVACIZUMAB
     Indication: Uveal melanoma
     Dosage: UNK

REACTIONS (3)
  - Maculopathy [Unknown]
  - Off label use [Unknown]
  - Drug ineffective for unapproved indication [Unknown]
